FAERS Safety Report 4785867-X (Version None)
Quarter: 2005Q4

REPORT INFORMATION
  Report Type: 
  Country: None (occurrence: None)
  Receive Date: 20051003
  Receipt Date: 20050718
  Transmission Date: 20060501
  Serious: Yes (Death, Hospitalization)
  Sender: FDA-Public Use
  Company Number: US-ROCHE-411241

PATIENT
  Age: 46 Year
  Sex: Male
  Weight: 110.2 kg

DRUGS (1)
  1. PEGASYS [Suspect]
     Indication: HEPATITIS C
     Dosage: TAKEN WEEKLY.
     Route: 058
     Dates: start: 20050216, end: 20050323

REACTIONS (2)
  - DISEASE PROGRESSION [None]
  - HEPATIC ENCEPHALOPATHY [None]
